FAERS Safety Report 6279571-9 (Version None)
Quarter: 2009Q3

REPORT INFORMATION
  Report Type: 
  Country: None (occurrence: None)
  Receive Date: 20090723
  Receipt Date: 20090714
  Transmission Date: 20100115
  Serious: Yes (Disabling)
  Sender: FDA-Public Use
  Company Number: A0796887A

PATIENT
  Age: 74 Year
  Sex: Male

DRUGS (9)
  1. REQUIP XL [Suspect]
     Indication: PARKINSON'S DISEASE
     Dosage: 6MG PER DAY
     Route: 048
     Dates: start: 20090301, end: 20090706
  2. CLONAZEPAM [Concomitant]
  3. SINEMET [Concomitant]
  4. AMLODIPINE [Concomitant]
  5. LISINOPRIL [Concomitant]
  6. SIMVASTATIN [Concomitant]
  7. RANITIDINE [Concomitant]
  8. BISACODYL [Concomitant]
  9. ACARBOSE [Concomitant]

REACTIONS (6)
  - ABASIA [None]
  - DYSKINESIA [None]
  - FALL [None]
  - HYPOAESTHESIA [None]
  - PAIN IN EXTREMITY [None]
  - RIB FRACTURE [None]
